FAERS Safety Report 6772584-X (Version None)
Quarter: 2010Q2

REPORT INFORMATION
  Report Type: 
  Country: None (occurrence: None)
  Receive Date: 20100616
  Receipt Date: 20091013
  Transmission Date: 20101027
  Serious: No
  Sender: FDA-Public Use
  Company Number: US-ASTRAZENECA-2009SE19739

PATIENT
  Age: 70 Year
  Sex: Male
  Weight: 91.2 kg

DRUGS (3)
  1. PULMICORT RESPULES [Suspect]
     Indication: PULMONARY FIBROSIS
     Dosage: 1MG TOTAL DAILY DOSE
     Route: 055
     Dates: start: 20090930
  2. SYNTHROID [Concomitant]
  3. DIAVAN [Concomitant]

REACTIONS (3)
  - DYSPHONIA [None]
  - OEDEMA PERIPHERAL [None]
  - RHINORRHOEA [None]
